FAERS Safety Report 8247081-5 (Version None)
Quarter: 2012Q1

REPORT INFORMATION
  Report Type: 
  Country: None (occurrence: None)
  Receive Date: 20120330
  Receipt Date: 20120326
  Transmission Date: 20120608
  Serious: Yes (Life-Threatening, Other)
  Sender: FDA-Public Use
  Company Number: GR-JNJFOC-20111211851

PATIENT
  Age: 46 Year
  Sex: Female
  Weight: 70 kg

DRUGS (12)
  1. PROPOFOL [Suspect]
     Indication: ANAESTHESIA
     Route: 065
  2. SEVOFLURANE [Suspect]
     Indication: ANAESTHESIA
     Route: 065
  3. PARECOXIB SODIUM [Concomitant]
     Indication: POSTOPERATIVE ANALGESIA
     Route: 065
  4. TRAMADOL HCL [Suspect]
     Indication: PAIN
     Route: 042
  5. RANITIDINE [Concomitant]
     Route: 065
  6. ROCURONIUM BROMIDE [Concomitant]
     Indication: ANAESTHESIA
     Route: 065
  7. FENTANYL CITRATE [Interacting]
     Indication: ANAESTHESIA
     Route: 050
  8. METOCLOPRAMIDE [Interacting]
     Indication: PRODUCT USED FOR UNKNOWN INDICATION
     Route: 065
  9. MIDAZOLAM [Concomitant]
     Route: 042
  10. ONDANSETRON [Concomitant]
     Route: 065
  11. SUCCINYLCHOLINE CHLORIDE [Concomitant]
     Indication: ANAESTHESIA
     Route: 065
  12. ACETAMINOPHEN [Concomitant]
     Indication: POSTOPERATIVE ANALGESIA
     Route: 065

REACTIONS (6)
  - DEPRESSED LEVEL OF CONSCIOUSNESS [None]
  - MYDRIASIS [None]
  - DRUG INTERACTION [None]
  - RESPIRATORY DEPRESSION [None]
  - UNRESPONSIVE TO STIMULI [None]
  - PAIN [None]
